FAERS Safety Report 9053554 (Version 1)
Quarter: 2013Q1

REPORT INFORMATION
  Report Type: Spontaneous
  Country: US (occurrence: US)
  Receive Date: 20130208
  Receipt Date: 20130208
  Transmission Date: 20140127
  Serious: No
  Sender: FDA-Public Use
  Company Number: US-009507513-1301USA014538

PATIENT
  Age: 40 Year
  Sex: Male

DRUGS (3)
  1. SAPHRIS [Suspect]
     Indication: BIPOLAR DISORDER
     Dosage: 10 MG, BID
     Route: 060
     Dates: end: 201212
  2. LITHIUM [Concomitant]
  3. LORAZEPAM [Concomitant]

REACTIONS (1)
  - Gynaecomastia [Unknown]
